FAERS Safety Report 8546387 (Version 2)
Quarter: 2012Q4

REPORT INFORMATION
  Report Type: 
  Country: US (occurrence: US)
  Receive Date: 20120504
  Receipt Date: 20120830
  Transmission Date: 20130627
  Serious: Yes (Hospitalization)
  Sender: FDA-Public Use
  Company Number: US-BAYER-2012-042704

PATIENT
  Age: 36 Year
  Sex: Female
  Weight: 60 kg

DRUGS (17)
  1. YASMIN [Suspect]
     Indication: ACNE
     Dosage: UNK
     Dates: start: 20051128, end: 200807
  2. YASMIN [Suspect]
     Indication: PREMENSTRUAL SYNDROME
  3. OCELLA [Suspect]
     Indication: ACNE
     Dosage: UNK
     Dates: start: 20090103, end: 201002
  4. OCELLA [Suspect]
     Indication: PREMENSTRUAL SYNDROME
  5. LEVOXYL [Concomitant]
     Indication: HYPOTHYROIDISM
     Dosage: UNK
     Route: 048
     Dates: start: 1999
  6. LORAZEPAM [Concomitant]
     Dosage: 2 mg, UNK
     Route: 048
     Dates: start: 20090402
  7. BENADRYL [Concomitant]
     Dosage: 25 mg, UNK
     Dates: start: 20090617
  8. ZOFRAN [Concomitant]
     Dosage: 4 mg, UNK
     Dates: start: 20090617
  9. PRILOSEC [Concomitant]
     Dosage: 40 mg, UNK
     Route: 048
     Dates: start: 20090617
  10. PRILOSEC [Concomitant]
     Dosage: 40 mg, UNK
     Dates: start: 20090623
  11. GAVISCON [Concomitant]
     Dosage: UNK
     Dates: start: 20090617
  12. DEMEROL [Concomitant]
     Dosage: 25 mg, UNK
     Dates: start: 20090617
  13. LORTAB [Concomitant]
     Dosage: 5-500 mg
     Route: 048
     Dates: start: 20090617
  14. VICODIN [Concomitant]
  15. ACETAMINOPHEN [Concomitant]
  16. DIPHENHYDRAMINE [Concomitant]
  17. OMEPRAZOLE [Concomitant]

REACTIONS (14)
  - Cholelithiasis [None]
  - Cholecystitis chronic [None]
  - Postoperative abscess [None]
  - Injury [None]
  - Pain [None]
  - Abdominal pain [None]
  - Nausea [None]
  - Vomiting [None]
  - Abdominal pain upper [None]
  - Post procedural discharge [None]
  - Infection [None]
  - Pyrexia [None]
  - Vomiting [None]
  - Nausea [None]
